FAERS Safety Report 22232407 (Version 1)
Quarter: 2023Q2

REPORT INFORMATION
  Report Type: Spontaneous
  Country: US (occurrence: None)
  Receive Date: 20230420
  Receipt Date: 20230420
  Transmission Date: 20230721
  Serious: No
  Sender: FDA-Public Use
  Company Number: US-ROCHE-3092824

PATIENT
  Age: 74 Year
  Sex: Male
  Weight: 64.468 kg

DRUGS (1)
  1. ESBRIET [Suspect]
     Active Substance: PIRFENIDONE
     Indication: Idiopathic pulmonary fibrosis
     Dosage: 3 267 MG TABLETS TID ;ONGOING: YES
     Route: 048

REACTIONS (4)
  - Headache [Unknown]
  - Respiratory tract infection viral [Unknown]
  - Decreased appetite [Unknown]
  - Sinusitis [Unknown]
